FAERS Safety Report 8908736 (Version 1)
Quarter: 2012Q4

REPORT INFORMATION
  Report Type: 
  Country: EG (occurrence: EG)
  Receive Date: 20121114
  Receipt Date: 20121114
  Transmission Date: 20130627
  Serious: Yes (Hospitalization, Other)
  Sender: FDA-Public Use
  Company Number: EG-ELI_LILLY_AND_COMPANY-EG201211001695

PATIENT
  Sex: Male

DRUGS (1)
  1. HUMAN INSULIN [Suspect]
     Indication: DIABETES MELLITUS
     Dosage: UNK
     Route: 058
     Dates: start: 20121102, end: 20121104

REACTIONS (1)
  - Coma [Not Recovered/Not Resolved]
